FAERS Safety Report 24707398 (Version 1)
Quarter: 2024Q4

REPORT INFORMATION
  Report Type: Report from Study
  Country: PE (occurrence: PE)
  Receive Date: 20241206
  Receipt Date: 20241206
  Transmission Date: 20250115
  Serious: Yes (Other)
  Sender: FERRING
  Company Number: PE-FERRINGPH-2024FE00849

PATIENT

DRUGS (1)
  1. DEGARELIX [Suspect]
     Active Substance: DEGARELIX
     Indication: Prostate cancer
     Dosage: 80 MG, MONTHLY
     Route: 058
     Dates: start: 20230714, end: 20241031

REACTIONS (4)
  - Drug resistance [Unknown]
  - Prostatic specific antigen increased [Not Recovered/Not Resolved]
  - Urinary tract infection [Unknown]
  - Nephrostomy [Not Recovered/Not Resolved]

NARRATIVE: CASE EVENT DATE: 20240211
